FAERS Safety Report 5147860-7 (Version None)
Quarter: 2006Q4

REPORT INFORMATION
  Report Type: 
  Country: None (occurrence: None)
  Receive Date: 20061110
  Receipt Date: 20061031
  Transmission Date: 20070319
  Serious: Yes (Other)
  Sender: FDA-Public Use
  Company Number: GBWYE374331OCT06

PATIENT
  Sex: Male

DRUGS (1)
  1. ENBREL [Suspect]
     Indication: AMYLOIDOSIS
     Route: 058
     Dates: start: 20031003, end: 20060911

REACTIONS (1)
  - DELUSIONAL DISORDER, PERSECUTORY TYPE [None]
